FAERS Safety Report 10110005 (Version 1)
Quarter: 2014Q2

REPORT INFORMATION
  Report Type: Spontaneous
  Country: US (occurrence: None)
  Receive Date: 20140423
  Receipt Date: 20140423
  Transmission Date: 20141212
  Serious: Yes (Hospitalization)
  Sender: FDA-Public Use
  Company Number: INS201404-000043

PATIENT
  Age: 25 Year
  Sex: Male
  Weight: 107 kg

DRUGS (9)
  1. SUBSYS SUBLINGUAL SPRAY (FENTANYL) [Suspect]
     Indication: PAIN
     Dosage: 100 MCG, EVERY FOUR HOURS
     Dates: start: 201308, end: 20140205
  2. FENTANYL PATCHES (FENTANYL) (FENTANYL) [Concomitant]
  3. PROTONIX (PANTOPRAZOLE) (PANTOPRAZOLE) [Concomitant]
  4. ARIXTRA (FONDAPARINUX) (FONDAPARINUX) [Concomitant]
  5. LIDOCAINE PATCH (LIDOCAINE) (LIDOCAINE) [Concomitant]
  6. PHENERGAN (PROMETHAZINE HC1) (PROMETHAZINE HC1) [Concomitant]
  7. ADAVAN (ATIVAN) (ATIVAN) [Concomitant]
  8. LANTUS (INSULIN) (INSULIN) [Concomitant]
  9. HUMALOG (INSULIN LISPRO) (INSULIN LISPRO) [Concomitant]

REACTIONS (1)
  - Off label use [None]
